FAERS Safety Report 6406595-0 (Version None)
Quarter: 2009Q4

REPORT INFORMATION
  Report Type: 
  Country: None (occurrence: None)
  Receive Date: 20091014
  Receipt Date: 20091012
  Transmission Date: 20100525
  Serious: Yes (Hospitalization, Other)
  Sender: FDA-Public Use
  Company Number: GXKR2009DE11151

PATIENT
  Age: 48 Year
  Sex: Male
  Weight: 90 kg

DRUGS (2)
  1. DOXEPIN (NGX) (DOXEPIN) FILM-COATED TABLET [Suspect]
     Indication: INITIAL INSOMNIA
     Dosage: 1-3 TABLETS DAILY, ORAL
     Route: 048
     Dates: start: 20070701, end: 20070701
  2. BERODUAL (FENOTEROL HYDROBROMIDE, IPRATROPIUM BROMIDE) [Concomitant]

REACTIONS (1)
  - HEPATITIS ACUTE [None]
